FAERS Safety Report 25084506 (Version 1)
Quarter: 2025Q1

REPORT INFORMATION
  Report Type: Spontaneous
  Country: US (occurrence: None)
  Receive Date: 20250317
  Receipt Date: 20250317
  Transmission Date: 20250409
  Serious: Yes (Death)
  Sender: FDA-CTU
  Company Number: None

PATIENT
  Age: 87 Year
  Sex: Female
  Weight: 78 kg

DRUGS (10)
  1. HUMIRA [Suspect]
     Active Substance: ADALIMUMAB
     Indication: Psoriatic arthropathy
     Route: 058
     Dates: start: 20210313, end: 20250122
  2. ATORVASTATIN [Concomitant]
     Active Substance: ATORVASTATIN
  3. ELIQUIS [Concomitant]
     Active Substance: APIXABAN
  4. FLUOXETINE [Concomitant]
     Active Substance: FLUOXETINE HYDROCHLORIDE
  5. HYDROXYUREA [Concomitant]
     Active Substance: HYDROXYUREA
  6. LEVOTHYROXINE [Concomitant]
     Active Substance: LEVOTHYROXINE
  7. NYSTOP TOP PWDR [Concomitant]
  8. OXYBUTYNIN [Concomitant]
     Active Substance: OXYBUTYNIN
  9. SOTALOL [Concomitant]
     Active Substance: SOTALOL
  10. TRAZODONE [Concomitant]
     Active Substance: TRAZODONE HYDROCHLORIDE

REACTIONS (1)
  - Death [None]

NARRATIVE: CASE EVENT DATE: 20250225
